FAERS Safety Report 23877736 (Version 1)
Quarter: 2024Q2

REPORT INFORMATION
  Report Type: Spontaneous
  Country: US (occurrence: US)
  Receive Date: 20240521
  Receipt Date: 20240521
  Transmission Date: 20240716
  Serious: Yes (Other)
  Sender: FDA-Public Use
  Company Number: US-HQ SPECIALTY-US-2024INT000054

PATIENT
  Age: 49 Year
  Sex: Male

DRUGS (4)
  1. CISPLATIN [Suspect]
     Active Substance: CISPLATIN
     Indication: Testis cancer
     Dosage: 20 MG/M2
     Route: 065
  2. IFOSFAMIDE [Concomitant]
     Active Substance: IFOSFAMIDE
     Indication: Testis cancer
     Dosage: UNK
     Route: 065
  3. PACLITAXEL [Concomitant]
     Active Substance: PACLITAXEL
     Indication: Testis cancer
     Dosage: UNK
     Route: 065
  4. ETOPOSIDE [Concomitant]
     Active Substance: ETOPOSIDE
     Indication: Testis cancer
     Dosage: UNK
     Route: 065

REACTIONS (3)
  - Renal salt-wasting syndrome [Recovered/Resolved]
  - Acute kidney injury [Unknown]
  - Hypomagnesaemia [Unknown]
